FAERS Safety Report 7702824-1 (Version None)
Quarter: 2011Q3

REPORT INFORMATION
  Report Type: 
  Country: None (occurrence: None)
  Receive Date: 20110823
  Receipt Date: 20110809
  Transmission Date: 20111222
  Serious: Yes (Other)
  Sender: FDA-Public Use
  Company Number: GB-JNJFOC-20110808789

PATIENT

DRUGS (7)
  1. FILGRASTIM [Suspect]
     Indication: HODGKIN'S DISEASE
     Dosage: PEGYLATED-FILGRASTIM
     Route: 065
  2. DOXORUBICIN HYDROCHLORIDE [Suspect]
     Indication: HODGKIN'S DISEASE
     Route: 042
  3. DOXORUBICIN HYDROCHLORIDE [Suspect]
     Route: 042
  4. BLEOMYCIN [Suspect]
     Indication: HODGKIN'S DISEASE
     Route: 065
  5. VINBLASTINE SULFATE [Suspect]
     Indication: HODGKIN'S DISEASE
     Route: 065
  6. DOXORUBICIN HYDROCHLORIDE [Suspect]
     Route: 042
  7. DACARBAZINE [Suspect]
     Indication: HODGKIN'S DISEASE
     Route: 065

REACTIONS (3)
  - NEUTROPENIC INFECTION [None]
  - NEUROPATHY PERIPHERAL [None]
  - PALMAR-PLANTAR ERYTHRODYSAESTHESIA SYNDROME [None]
